FAERS Safety Report 20507608 (Version 1)
Quarter: 2022Q1

REPORT INFORMATION
  Report Type: Spontaneous
  Country: TR (occurrence: TR)
  Receive Date: 20220223
  Receipt Date: 20220223
  Transmission Date: 20220423
  Serious: Yes (Other)
  Sender: FDA-Public Use
  Company Number: TR-Fresenius Kabi-FK202202005

PATIENT
  Age: 11 Year
  Sex: Female
  Weight: 30 kg

DRUGS (3)
  1. CALCIUM [Suspect]
     Active Substance: CALCIUM
     Indication: Pseudohypoparathyroidism
     Route: 042
  2. CALCIUM [Concomitant]
     Active Substance: CALCIUM
     Indication: Pseudohypoparathyroidism
     Route: 048
  3. CALCITRIOL [Concomitant]
     Active Substance: CALCITRIOL
     Indication: Pseudohypoparathyroidism
     Route: 065

REACTIONS (3)
  - Thrombophlebitis [Unknown]
  - Administration site extravasation [Unknown]
  - Vascular calcification [Recovered/Resolved]
